FAERS Safety Report 23177826 (Version 1)
Quarter: 2023Q4

REPORT INFORMATION
  Report Type: Spontaneous
  Country: US (occurrence: US)
  Receive Date: 20231113
  Receipt Date: 20231113
  Transmission Date: 20240110
  Serious: No
  Sender: FDA-Public Use
  Company Number: US-PERRIGO-23US011102

PATIENT
  Age: 71 Year
  Sex: Female
  Weight: 52.154 kg

DRUGS (11)
  1. POLYETHYLENE GLYCOL 3350 [Suspect]
     Active Substance: POLYETHYLENE GLYCOL 3350
     Indication: Constipation
     Dosage: 42.5 G, QD
     Route: 048
     Dates: start: 20230901, end: 202309
  2. POLYETHYLENE GLYCOL 3350 [Suspect]
     Active Substance: POLYETHYLENE GLYCOL 3350
     Dosage: 42.5 G, QD
     Route: 048
     Dates: start: 202207, end: 20230831
  3. AZELASTINE [Concomitant]
     Active Substance: AZELASTINE\AZELASTINE HYDROCHLORIDE
     Indication: Seasonal allergy
     Dosage: UNK
     Route: 065
     Dates: start: 202210
  4. MOTILITY ACTIVATOR [Concomitant]
     Indication: Functional gastrointestinal disorder
     Dosage: UNK
     Route: 065
     Dates: start: 2013
  5. MAGNESIUM OXIDE [Concomitant]
     Active Substance: MAGNESIUM OXIDE
     Indication: Functional gastrointestinal disorder
     Dosage: 400 MG, UNK
     Route: 065
     Dates: start: 2013
  6. STOOL SOFTENER (DOCUSATE) [Concomitant]
     Active Substance: DOCUSATE
     Indication: Functional gastrointestinal disorder
     Dosage: UNK, PRN
     Route: 065
     Dates: start: 2013
  7. PROBIOTICS NOS;VITAMINS NOS [Concomitant]
     Indication: Functional gastrointestinal disorder
     Dosage: UNK
     Route: 065
     Dates: start: 2013
  8. UNSPECIFIED INGREDIENT [Concomitant]
     Active Substance: UNSPECIFIED INGREDIENT
     Indication: Functional gastrointestinal disorder
     Dosage: 1000 MG, UNK
     Route: 065
     Dates: start: 2013
  9. BOS TAURUS BILE [Concomitant]
     Active Substance: BOS TAURUS BILE
     Indication: Functional gastrointestinal disorder
     Dosage: 125 MG, UNK
     Route: 065
     Dates: start: 2013
  10. ENZYMES NOS [Concomitant]
     Indication: Functional gastrointestinal disorder
     Dosage: UNK
     Route: 065
     Dates: start: 2013
  11. VITAMIN C [Concomitant]
     Active Substance: ASCORBIC ACID
     Indication: Functional gastrointestinal disorder
     Dosage: UNK
     Route: 065
     Dates: start: 2013

REACTIONS (3)
  - Foreign body ingestion [Recovered/Resolved]
  - Incorrect product administration duration [Unknown]
  - Overdose [Unknown]

NARRATIVE: CASE EVENT DATE: 20220701
